FAERS Safety Report 5527873-3 (Version None)
Quarter: 2007Q4

REPORT INFORMATION
  Report Type: 
  Country: None (occurrence: None)
  Receive Date: 20071128
  Receipt Date: 20071116
  Transmission Date: 20080405
  Serious: Yes (Hospitalization, Other)
  Sender: FDA-Public Use
  Company Number: JP-JNJFOC-20071002087

PATIENT
  Sex: Male
  Weight: 67 kg

DRUGS (21)
  1. REMICADE [Suspect]
     Route: 042
  2. REMICADE [Suspect]
     Dosage: 6 INFUSIONS (INFUSION #2-7) ON UNSPECIFIED DATES.
     Route: 042
  3. REMICADE [Suspect]
     Dosage: 6 INFUSIONS (INFUSION #2-7) ON UNSPECIFIED DATES.
     Route: 042
  4. REMICADE [Suspect]
     Dosage: 6 INFUSIONS (INFUSION #2-7) ON UNSPECIFIED DATES.
     Route: 042
  5. REMICADE [Suspect]
     Dosage: 6 INFUSIONS (INFUSION #2-7) ON UNSPECIFIED DATES.
     Route: 042
  6. REMICADE [Suspect]
     Dosage: 6 INFUSIONS (INFUSION #2-7) ON UNSPECIFIED DATES.
     Route: 042
  7. REMICADE [Suspect]
     Dosage: 6 INFUSIONS (INFUSION #2-7) ON UNSPECIFIED DATES.
     Route: 042
  8. REMICADE [Suspect]
     Indication: RHEUMATOID ARTHRITIS
     Route: 042
  9. PREDONINE [Concomitant]
     Indication: RHEUMATOID ARTHRITIS
     Route: 048
  10. AZULFIDINE EN-TABS [Concomitant]
     Indication: RHEUMATOID ARTHRITIS
     Route: 048
  11. ISCOTIN [Concomitant]
     Indication: PROPHYLAXIS
     Route: 048
  12. ISCOTIN [Concomitant]
     Indication: BRONCHITIS CHRONIC
     Route: 048
  13. BACTRIM [Concomitant]
     Indication: PROPHYLAXIS
     Route: 048
  14. BACTRIM [Concomitant]
     Indication: BRONCHITIS CHRONIC
     Route: 048
  15. BONALON [Concomitant]
     Indication: OSTEOPOROSIS
     Route: 048
  16. HYPEN [Concomitant]
     Indication: RHEUMATOID ARTHRITIS
     Route: 048
  17. AMLODIN [Concomitant]
     Indication: HYPERTENSION
     Route: 048
  18. RENOPENT [Concomitant]
     Indication: HYPERTENSION
     Route: 048
  19. TAKEPRON [Concomitant]
     Indication: DUODENAL ULCER
     Route: 048
  20. KLARICID [Concomitant]
     Indication: BRONCHITIS CHRONIC
     Route: 048
  21. RHEUMATREX [Concomitant]
     Indication: RHEUMATOID ARTHRITIS
     Route: 048

REACTIONS (1)
  - OESOPHAGEAL SQUAMOUS CELL CARCINOMA [None]
